FAERS Safety Report 6339445-1 (Version None)
Quarter: 2009Q3

REPORT INFORMATION
  Report Type: 
  Country: None (occurrence: None)
  Receive Date: 20090903
  Receipt Date: 20090825
  Transmission Date: 20100115
  Serious: Yes (Hospitalization)
  Sender: FDA-Public Use
  Company Number: US-ELI_LILLY_AND_COMPANY-US200904005588

PATIENT
  Sex: Female

DRUGS (5)
  1. HUMALOG [Suspect]
  2. HUMALOG [Suspect]
  3. HUMALOG [Suspect]
  4. HUMALOG [Suspect]
  5. LANTUS [Concomitant]

REACTIONS (3)
  - DRUG DISPENSING ERROR [None]
  - LUNG INFECTION [None]
  - PNEUMONIA [None]
